FAERS Safety Report 5470148-1 (Version None)
Quarter: 2007Q3

REPORT INFORMATION
  Report Type: 
  Country: None (occurrence: None)
  Receive Date: 20070927
  Receipt Date: 20070919
  Transmission Date: 20080115
  Serious: Yes (Other)
  Sender: FDA-Public Use
  Company Number: US-PFIZER INC-2007078460

PATIENT
  Sex: Female

DRUGS (3)
  1. LIPITOR [Suspect]
  2. METHOTREXATE [Suspect]
  3. ETANERCEPT [Suspect]

REACTIONS (4)
  - DIZZINESS [None]
  - LOSS OF CONSCIOUSNESS [None]
  - NAUSEA [None]
  - PARALYSIS [None]
